FAERS Safety Report 7096177-2 (Version None)
Quarter: 2010Q4

REPORT INFORMATION
  Report Type: 
  Country: None (occurrence: None)
  Receive Date: 20101111
  Receipt Date: 20101103
  Transmission Date: 20110411
  Serious: Yes (Hospitalization)
  Sender: FDA-Public Use
  Company Number: RO-JNJFOC-20101102029

PATIENT
  Age: 36 Year
  Sex: Male

DRUGS (3)
  1. REMICADE [Suspect]
     Indication: PSORIASIS
     Route: 042
  2. REMICADE [Suspect]
     Route: 042
  3. REMICADE [Suspect]
     Route: 042

REACTIONS (4)
  - GASTROINTESTINAL DISORDER [None]
  - GENERAL PHYSICAL CONDITION ABNORMAL [None]
  - TUBERCULOUS PLEURISY [None]
  - VOMITING [None]
